FAERS Safety Report 15664326 (Version 1)
Quarter: 2018Q4

REPORT INFORMATION
  Report Type: Spontaneous
  Country: US (occurrence: US)
  Receive Date: 20181127
  Receipt Date: 20181127
  Transmission Date: 20190205
  Serious: No
  Sender: FDA-Public Use
  Company Number: None

PATIENT
  Age: 47 Year
  Sex: Male
  Weight: 101.25 kg

DRUGS (3)
  1. VITAMIN [Concomitant]
     Active Substance: VITAMINS
  2. SIMVASTATIN. [Concomitant]
     Active Substance: SIMVASTATIN
  3. METHYLPHENIDATE HCL ER [Suspect]
     Active Substance: METHYLPHENIDATE HYDROCHLORIDE
     Indication: PRODUCT USED FOR UNKNOWN INDICATION
     Dosage: ?          QUANTITY:2 TABLET(S);?
     Route: 048

REACTIONS (7)
  - Drug effect decreased [None]
  - Product prescribing issue [None]
  - Irritability [None]
  - Somnolence [None]
  - Agitation [None]
  - Therapeutic response changed [None]
  - Disturbance in attention [None]

NARRATIVE: CASE EVENT DATE: 20180101
